FAERS Safety Report 4517794-7 (Version None)
Quarter: 2004Q4

REPORT INFORMATION
  Report Type: 
  Country: None (occurrence: None)
  Receive Date: 20041201
  Receipt Date: 20041201
  Transmission Date: 20050328
  Serious: Yes (Other)
  Sender: FDA-Public Use
  Company Number: None

PATIENT
  Age: 75 Year
  Sex: Female
  Weight: 68.0396 kg

DRUGS (6)
  1. VIOXX [Suspect]
     Indication: ARTHRITIS
     Dosage: 1 TABLET / DAY / ORAL
     Route: 048
     Dates: start: 20040718, end: 20040908
  2. COUMADIN [Concomitant]
  3. ACTONEL [Concomitant]
  4. ASPIRIN [Concomitant]
  5. TUMS [Concomitant]
  6. VIT E [Concomitant]

REACTIONS (4)
  - ABDOMINAL PAIN UPPER [None]
  - ARTHROPATHY [None]
  - BACK DISORDER [None]
  - NEPHROLITHIASIS [None]
